FAERS Safety Report 9163563 (Version 2)
Quarter: 2013Q1

REPORT INFORMATION
  Report Type: Spontaneous
  Country: VE (occurrence: VE)
  Receive Date: 20130314
  Receipt Date: 20130320
  Transmission Date: 20140127
  Serious: Yes (Other)
  Sender: FDA-Public Use
  Company Number: VE-PFIZER INC-2013085806

PATIENT
  Age: 85 Year
  Sex: Male

DRUGS (1)
  1. LIPITOR [Suspect]
     Dosage: 20 MG, 1X/DAY
     Route: 048
     Dates: end: 2012

REACTIONS (2)
  - Pancreatic carcinoma [Not Recovered/Not Resolved]
  - Rotator cuff syndrome [Recovered/Resolved]
